FAERS Safety Report 6047249-2 (Version None)
Quarter: 2009Q1

REPORT INFORMATION
  Report Type: 
  Country: None (occurrence: None)
  Receive Date: 20090122
  Receipt Date: 20090109
  Transmission Date: 20090719
  Serious: No
  Sender: FDA-Public Use
  Company Number: FR-ELI_LILLY_AND_COMPANY-FR200901001302

PATIENT
  Age: 66 Year
  Sex: Female

DRUGS (1)
  1. ZYPREXA [Suspect]
     Route: 048
     Dates: start: 20081210

REACTIONS (2)
  - LEUKOPENIA [None]
  - TREMOR [None]
